FAERS Safety Report 7853697-8 (Version None)
Quarter: 2011Q4

REPORT INFORMATION
  Report Type: 
  Country: None (occurrence: None)
  Receive Date: 20111026
  Receipt Date: 20111013
  Transmission Date: 20120403
  Serious: Yes (Hospitalization)
  Sender: FDA-Public Use
  Company Number: US-BAYER-2010-009216

PATIENT
  Age: 46 Year
  Sex: Female
  Weight: 86 kg

DRUGS (9)
  1. CYMBALTA [Concomitant]
     Dosage: 60 MG, UNK
  2. XANAX [Concomitant]
     Dosage: UNK UNK, PRN
  3. NEXIUM [Concomitant]
  4. ZESTRIL [Concomitant]
  5. PAXIL CR [Concomitant]
     Dosage: 25 MG, QD
  6. HYDROCHLOROTHIAZIDE [Concomitant]
  7. LEVBID [Concomitant]
     Dosage: UNK UNK, BID
  8. YASMIN [Suspect]
     Dosage: UNK
     Dates: start: 20051101, end: 20060101
  9. SOMA [Concomitant]
     Dosage: 350 MG, BID

REACTIONS (8)
  - THROMBOSIS [None]
  - MENTAL DISORDER [None]
  - SPEECH DISORDER [None]
  - CEREBROVASCULAR ACCIDENT [None]
  - FEAR [None]
  - PAIN [None]
  - INJURY [None]
  - HYPOAESTHESIA [None]
